FAERS Safety Report 21488706 (Version 1)
Quarter: 2022Q4

REPORT INFORMATION
  Report Type: Spontaneous
  Country: GB (occurrence: GB)
  Receive Date: 20221021
  Receipt Date: 20221021
  Transmission Date: 20230112
  Serious: Yes (Other)
  Sender: FDA-Public Use
  Company Number: GB-TEVA-2022-GB-2817515

PATIENT
  Age: 26 Year
  Sex: Male

DRUGS (1)
  1. LIDOCAINE [Suspect]
     Active Substance: LIDOCAINE
     Indication: Anaesthesia
     Dosage: THE TOPICAL PREPARATION WAS SOURCED ONLINE, CAME IN A NONDESCRIPT WHITE TUBE, AND WAS MARKETED AS...
     Route: 061

REACTIONS (3)
  - Chemical burn [Recovered/Resolved]
  - Pseudomonas infection [Recovered/Resolved]
  - Intentional product misuse [Recovered/Resolved]
